FAERS Safety Report 7656639-3 (Version None)
Quarter: 2011Q3

REPORT INFORMATION
  Report Type: 
  Country: None (occurrence: None)
  Receive Date: 20110804
  Receipt Date: 20110729
  Transmission Date: 20111222
  Serious: Yes (Other)
  Sender: FDA-Public Use
  Company Number: FR-BRISTOL-MYERS SQUIBB COMPANY-15591738

PATIENT
  Age: 81 Year
  Sex: Female
  Weight: 57 kg

DRUGS (4)
  1. IPILIMUMAB [Suspect]
     Indication: METASTATIC MALIGNANT MELANOMA
     Dosage: LAST INF ON 06JAN11,26JAN11,17FEB11 AND 08MAR11.
     Route: 042
     Dates: start: 20110106, end: 20110308
  2. SIMVASTATIN [Concomitant]
  3. CELIPROLOL [Concomitant]
  4. LASIX [Concomitant]

REACTIONS (3)
  - DERMATITIS PSORIASIFORM [None]
  - DYSPNOEA [None]
  - HYPERTENSION [None]
